FAERS Safety Report 12248351 (Version 2)
Quarter: 2017Q3

REPORT INFORMATION
  Report Type: Spontaneous
  Country: RU (occurrence: RU)
  Receive Date: 20160408
  Receipt Date: 20170907
  Transmission Date: 20171127
  Serious: Yes (Death)
  Sender: FDA-Public Use
  Company Number: RU-BAYER-2016-066489

PATIENT
  Age: 70 Year
  Sex: Female

DRUGS (1)
  1. ULTRAVIST [Suspect]
     Active Substance: IOPROMIDE
     Indication: ARTERIOGRAM CORONARY
     Dosage: 1 DF, ONCE
     Route: 013
     Dates: start: 20150522, end: 20150522

REACTIONS (11)
  - Death [Fatal]
  - Acute myocardial infarction [Fatal]
  - Ventricular tachycardia [Fatal]
  - Acute myocardial infarction [Fatal]
  - Ventricular fibrillation [Fatal]
  - Ventricular fibrillation [Fatal]
  - Multiple organ dysfunction syndrome [Fatal]
  - Cardiac aneurysm [Fatal]
  - Cardiac failure acute [Fatal]
  - Hydrothorax [Fatal]
  - Pulmonary oedema [Fatal]

NARRATIVE: CASE EVENT DATE: 2015
